FAERS Safety Report 20233284 (Version 1)
Quarter: 2021Q4

REPORT INFORMATION
  Report Type: Spontaneous
  Country: GB (occurrence: GB)
  Receive Date: 20211227
  Receipt Date: 20211227
  Transmission Date: 20220303
  Serious: Yes (Life-Threatening)
  Sender: FDA-Public Use
  Company Number: None

PATIENT
  Age: 3 Decade
  Sex: Female
  Weight: 90 kg

DRUGS (3)
  1. HALOPERIDOL [Suspect]
     Active Substance: HALOPERIDOL
     Indication: Ill-defined disorder
     Route: 048
  2. ZUCLOPENTHIXOL [Suspect]
     Active Substance: ZUCLOPENTHIXOL
     Indication: Ill-defined disorder
     Dosage: 200
     Route: 051
  3. LITHIUM [Concomitant]
     Active Substance: LITHIUM
     Indication: Ill-defined disorder

REACTIONS (4)
  - Panic attack [Not Recovered/Not Resolved]
  - Panic attack [Unknown]
  - Adverse drug reaction [Unknown]
  - Medication error [Unknown]
